FAERS Safety Report 4775639-4 (Version None)
Quarter: 2005Q3

REPORT INFORMATION
  Report Type: 
  Country: None (occurrence: None)
  Receive Date: 20050920
  Receipt Date: 20050920
  Transmission Date: 20060218
  Serious: Yes (Hospitalization)
  Sender: FDA-Public Use
  Company Number: None

PATIENT
  Age: 38 Year
  Sex: Female

DRUGS (1)
  1. DROPERIDOL [Suspect]
     Dosage: 2.5 MG IV  ONE TIME
     Route: 042
     Dates: start: 20050126

REACTIONS (2)
  - APHASIA [None]
  - PARALYSIS [None]
